FAERS Safety Report 5715819-4 (Version None)
Quarter: 2008Q2

REPORT INFORMATION
  Report Type: 
  Country: None (occurrence: None)
  Receive Date: 20080424
  Receipt Date: 20080416
  Transmission Date: 20081010
  Serious: Yes (Hospitalization)
  Sender: FDA-Public Use
  Company Number: BR-ASTRAZENECA-2008UW08045

PATIENT
  Age: 66 Year
  Sex: Female
  Weight: 49.5 kg

DRUGS (13)
  1. ARIMIDEX [Suspect]
     Indication: BREAST CANCER
     Route: 048
     Dates: start: 20070101
  2. VENLIFT [Concomitant]
     Indication: DEPRESSION
     Dates: start: 20060101
  3. RIVOTRIL [Concomitant]
     Indication: INSOMNIA
     Dates: start: 20060101
  4. ENSURE [Concomitant]
     Indication: VITAMIN SUPPLEMENTATION
     Dates: start: 20060101
  5. HYGROTON [Concomitant]
     Indication: HYPERTENSION
  6. PLAVIX [Concomitant]
     Dates: start: 20071101
  7. VYTORIN [Concomitant]
     Dates: start: 20071101
  8. ASPIRIN PREVENT [Concomitant]
     Dates: start: 20071101
  9. CENTRUM SILVER [Concomitant]
     Dates: start: 20071101
  10. NEXIUM [Concomitant]
     Indication: GASTRIC DISORDER
     Route: 048
  11. NEXIUM [Concomitant]
     Indication: ABDOMINAL PAIN UPPER
     Route: 048
  12. NEXIUM [Concomitant]
     Indication: FLATULENCE
     Route: 048
  13. BISOPROLOL FUMARATE [Concomitant]
     Dates: start: 20080101

REACTIONS (3)
  - ARTERIAL OCCLUSIVE DISEASE [None]
  - HEPATIC ENZYME INCREASED [None]
  - OSTEOPENIA [None]
